FAERS Safety Report 7206512-X (Version None)
Quarter: 2010Q4

REPORT INFORMATION
  Report Type: 
  Country: None (occurrence: None)
  Receive Date: 20101229
  Receipt Date: 20101229
  Transmission Date: 20110411
  Serious: Yes (Hospitalization)
  Sender: FDA-Public Use
  Company Number: None

PATIENT
  Age: 49 Year
  Sex: Female
  Weight: 49.8957 kg

DRUGS (2)
  1. NEULASTA [Suspect]
     Indication: CHEMOTHERAPY
     Dosage: 6MG SINGLE USE SYRINGE SQ
     Route: 058
     Dates: start: 20101216, end: 20101216
  2. CHEMOTHERAPY ^AC^ [Concomitant]

REACTIONS (5)
  - MUSCLE SPASMS [None]
  - NAUSEA [None]
  - PAIN [None]
  - SYNCOPE [None]
  - VOMITING [None]
